FAERS Safety Report 13799361 (Version 2)
Quarter: 2018Q2

REPORT INFORMATION
  Report Type: Report from Study
  Country: US (occurrence: US)
  Receive Date: 20170727
  Receipt Date: 20180523
  Transmission Date: 20180711
  Serious: No
  Sender: FDA-Public Use
  Company Number: PHHY2017US110704

PATIENT
  Sex: Female

DRUGS (1)
  1. SYSTANE (HYPROMELLOSE 2910 (4000 MPA.S)) [Suspect]
     Active Substance: HYPROMELLOSE 2910 (4000 MPA.S)
     Indication: PRODUCT USED FOR UNKNOWN INDICATION
     Dosage: USED IN LEFT EYE
     Route: 047

REACTIONS (1)
  - Dry eye [Recovered/Resolved]
